FAERS Safety Report 12621959 (Version 1)
Quarter: 2016Q3

REPORT INFORMATION
  Report Type: Report from Study
  Country: US (occurrence: US)
  Receive Date: 20160804
  Receipt Date: 20160804
  Transmission Date: 20161109
  Serious: Yes (Other)
  Sender: FDA-Public Use
  Company Number: US-ROCHE-769803

PATIENT
  Sex: Male

DRUGS (7)
  1. VISMODEGIB [Suspect]
     Active Substance: VISMODEGIB
     Route: 065
  2. VISMODEGIB [Suspect]
     Active Substance: VISMODEGIB
     Route: 065
  3. VISMODEGIB [Suspect]
     Active Substance: VISMODEGIB
     Route: 065
  4. VISMODEGIB [Suspect]
     Active Substance: VISMODEGIB
     Route: 065
  5. VISMODEGIB [Suspect]
     Active Substance: VISMODEGIB
     Route: 065
  6. VISMODEGIB [Suspect]
     Active Substance: VISMODEGIB
     Indication: MEDULLOBLASTOMA
     Dosage: 150 MG, QD
     Route: 048
  7. VISMODEGIB [Suspect]
     Active Substance: VISMODEGIB
     Route: 065

REACTIONS (3)
  - Hypophosphataemia [Unknown]
  - Lymphocyte count decreased [Unknown]
  - Fatigue [Unknown]
